FAERS Safety Report 10736450 (Version 1)
Quarter: 2015Q1

REPORT INFORMATION
  Report Type: Spontaneous
  Country: US (occurrence: None)
  Receive Date: 20150122
  Receipt Date: 20150122
  Transmission Date: 20150721
  Serious: Yes (Disabling)
  Sender: FDA-Public Use
  Company Number: None

PATIENT
  Age: 38 Year
  Sex: Female

DRUGS (1)
  1. QSYMIA [Suspect]
     Active Substance: PHENTERMINE HYDROCHLORIDE\TOPIRAMATE
     Indication: WEIGHT DECREASED
     Dosage: 1/ DAILY AT MORNING
     Route: 048
     Dates: start: 20150111, end: 20150120

REACTIONS (10)
  - Ocular discomfort [None]
  - Feeling abnormal [None]
  - Glaucoma [None]
  - Dizziness [None]
  - Eye pain [None]
  - Photophobia [None]
  - Vision blurred [None]
  - Visual acuity reduced [None]
  - Migraine [None]
  - Nausea [None]

NARRATIVE: CASE EVENT DATE: 20150120
